FAERS Safety Report 15111704 (Version 1)
Quarter: 2018Q3

REPORT INFORMATION
  Report Type: Spontaneous
  Country: DE (occurrence: DE)
  Receive Date: 20180705
  Receipt Date: 20180705
  Transmission Date: 20181010
  Serious: Yes (Other)
  Sender: FDA-Public Use
  Company Number: DE-ELI_LILLY_AND_COMPANY-DE201806013400

PATIENT
  Age: 68 Year
  Sex: Male

DRUGS (2)
  1. LANTUS [Suspect]
     Active Substance: INSULIN GLARGINE
     Indication: SUICIDAL IDEATION
     Dosage: 1500 IU, DAILY
     Route: 058
     Dates: start: 201805, end: 201805
  2. HUMALOG [Suspect]
     Active Substance: INSULIN LISPRO
     Indication: SUICIDAL IDEATION
     Dosage: 300 IU, DAILY
     Route: 058
     Dates: start: 201805, end: 201805

REACTIONS (2)
  - Suicidal behaviour [Unknown]
  - Off label use [Unknown]

NARRATIVE: CASE EVENT DATE: 201805
